FAERS Safety Report 5496219-1 (Version None)
Quarter: 2007Q4

REPORT INFORMATION
  Report Type: 
  Country: None (occurrence: None)
  Receive Date: 20071025
  Receipt Date: 20070514
  Transmission Date: 20080405
  Serious: No
  Sender: FDA-Public Use
  Company Number: A0643052A

PATIENT
  Age: 67 Year
  Sex: Female

DRUGS (5)
  1. ADVAIR DISKUS 100/50 [Suspect]
     Indication: CHRONIC OBSTRUCTIVE PULMONARY DISEASE
     Route: 055
  2. TOPROL-XL [Concomitant]
  3. CYMBALTA [Concomitant]
  4. ALBUTEROL [Concomitant]
  5. COMBIVENT [Concomitant]

REACTIONS (4)
  - APHONIA [None]
  - DYSPNOEA [None]
  - EXPIRED DRUG ADMINISTERED [None]
  - PHARMACEUTICAL PRODUCT COMPLAINT [None]
